FAERS Safety Report 5082233-7 (Version None)
Quarter: 2006Q3

REPORT INFORMATION
  Report Type: 
  Country: None (occurrence: None)
  Receive Date: 20060814
  Receipt Date: 20060803
  Transmission Date: 20061208
  Serious: Yes (Death)
  Sender: FDA-Public Use
  Company Number: EM2006-0429

PATIENT
  Age: 48 Year
  Sex: Male
  Weight: 81.2 kg

DRUGS (9)
  1. PROLEUKIN [Suspect]
     Indication: RENAL CANCER METASTATIC
     Dosage: SEE IMAGE
     Route: 042
     Dates: start: 20060802, end: 20060802
  2. PROLEUKIN [Suspect]
     Indication: RENAL CANCER METASTATIC
     Dosage: SEE IMAGE
     Route: 042
     Dates: start: 20060418
  3. AVASTIN [Suspect]
     Indication: RENAL CANCER METASTATIC
     Dates: start: 20060404, end: 20060802
  4. BENADRYL [Concomitant]
  5. INDOCIN [Concomitant]
  6. ANZEMET [Concomitant]
  7. LEVAQUIN [Concomitant]
  8. EUCERIN CREME (WOOL FAT, PETROLATUM, PARAFFIN LIQUID) [Concomitant]
  9. SARNA (CAMPHOR, MENTHOL) [Concomitant]

REACTIONS (7)
  - CARDIOGENIC SHOCK [None]
  - CHEST PAIN [None]
  - ELECTROMECHANICAL DISSOCIATION [None]
  - HEART RATE INCREASED [None]
  - HYPOTENSION [None]
  - LOSS OF CONSCIOUSNESS [None]
  - RESPIRATORY FAILURE [None]
